FAERS Safety Report 17324199 (Version 3)
Quarter: 2023Q1

REPORT INFORMATION
  Report Type: Other
  Country: GB (occurrence: None)
  Receive Date: 20200127
  Receipt Date: 20230308
  Transmission Date: 20230417
  Serious: Yes (Other)
  Sender: FDA-Public Use
  Company Number: GB-ROCHE-2526313

PATIENT
  Sex: Female

DRUGS (1)
  1. TOCILIZUMAB [Suspect]
     Active Substance: TOCILIZUMAB
     Indication: Giant cell arteritis
     Dosage: PRE-FILLED PEN
     Route: 058
     Dates: start: 201912

REACTIONS (8)
  - Dyspnoea [Unknown]
  - Urinary tract infection [Unknown]
  - Peripheral swelling [Unknown]
  - White blood cell count abnormal [Unknown]
  - Wrong technique in product usage process [Unknown]
  - Musculoskeletal stiffness [Unknown]
  - Gastric disorder [Unknown]
  - Feeling abnormal [Unknown]
